FAERS Safety Report 7071420-4 (Version None)
Quarter: 2010Q4

REPORT INFORMATION
  Report Type: 
  Country: None (occurrence: None)
  Receive Date: 20101029
  Receipt Date: 20091215
  Transmission Date: 20110411
  Serious: Yes (Other)
  Sender: FDA-Public Use
  Company Number: A0800734A

PATIENT
  Age: 64 Year
  Sex: Female

DRUGS (5)
  1. ADVAIR DISKUS 100/50 [Suspect]
     Indication: CHRONIC OBSTRUCTIVE PULMONARY DISEASE
     Dosage: 1PUFF TWICE PER DAY
     Route: 055
     Dates: start: 20051001
  2. SPIRIVA [Concomitant]
  3. LIPITOR [Concomitant]
  4. TRICOR [Concomitant]
  5. THYROID [Concomitant]

REACTIONS (2)
  - CATARACT [None]
  - CATARACT OPERATION [None]
